FAERS Safety Report 21179992 (Version 2)
Quarter: 2022Q3

REPORT INFORMATION
  Report Type: Spontaneous
  Country: US (occurrence: US)
  Receive Date: 20220805
  Receipt Date: 20220825
  Transmission Date: 20221027
  Serious: No
  Sender: FDA-Public Use
  Company Number: US-BIOMARINAP-US-2022-144717

PATIENT

DRUGS (2)
  1. VOXZOGO [Suspect]
     Active Substance: VOSORITIDE
     Indication: Osteochondrodysplasia
     Dosage: 0.4 MILLIGRAM, QD
     Route: 058
     Dates: start: 20220505
  2. VOXZOGO [Suspect]
     Active Substance: VOSORITIDE
     Dosage: 0.5 MILLIGRAM, QD
     Route: 058
     Dates: start: 20220802

REACTIONS (1)
  - Weight increased [Recovered/Resolved]
